FAERS Safety Report 6729267-1 (Version None)
Quarter: 2010Q2

REPORT INFORMATION
  Report Type: 
  Country: None (occurrence: None)
  Receive Date: 20100517
  Receipt Date: 20100422
  Transmission Date: 20101027
  Serious: No
  Sender: FDA-Public Use
  Company Number: US-ABBOTT-10P-163-0641323-00

PATIENT
  Sex: Male
  Weight: 77.634 kg

DRUGS (6)
  1. SIMCOR [Suspect]
     Indication: BLOOD CHOLESTEROL INCREASED
     Dosage: UNSURE OF STRENGTH
     Route: 048
     Dates: start: 20100401
  2. AMLODIPINE BESYLATE [Concomitant]
     Indication: HYPERTENSION
     Dosage: ^VERY LOW DOSE^
     Route: 048
  3. ASPIRIN [Concomitant]
     Indication: PROPHYLAXIS
     Route: 048
  4. ASPIRIN [Concomitant]
     Indication: FLUSHING
  5. FLONASE [Concomitant]
     Indication: SEASONAL ALLERGY
     Route: 045
  6. LORATADINE [Concomitant]
     Indication: SEASONAL ALLERGY
     Route: 048

REACTIONS (4)
  - FEELING HOT [None]
  - FLUSHING [None]
  - PRURITUS [None]
  - RASH MACULAR [None]
